FAERS Safety Report 20768917 (Version 1)
Quarter: 2022Q2

REPORT INFORMATION
  Report Type: Spontaneous
  Country: US (occurrence: US)
  Receive Date: 20220429
  Receipt Date: 20220429
  Transmission Date: 20220721
  Serious: No
  Sender: FDA-Public Use
  Company Number: CO-BAYER-2022A052796

PATIENT
  Age: 86 Year
  Sex: Female

DRUGS (1)
  1. MIRALAX [Suspect]
     Active Substance: POLYETHYLENE GLYCOL 3350
     Indication: Gastrointestinal disorder
     Dosage: ;17 GRAMS OF POWDER MIXED WIT 8 OZ BEVERAGE OR LITTLE BIT MORE DOSE
     Route: 048
     Dates: start: 202204, end: 20220412

REACTIONS (2)
  - Therapeutic product effect delayed [Recovered/Resolved]
  - Drug ineffective [Recovered/Resolved]

NARRATIVE: CASE EVENT DATE: 20220401
